FAERS Safety Report 6628667-8 (Version None)
Quarter: 2010Q1

REPORT INFORMATION
  Report Type: 
  Country: None (occurrence: None)
  Receive Date: 20100311
  Receipt Date: 20100303
  Transmission Date: 20100710
  Serious: Yes (Other)
  Sender: FDA-Public Use
  Company Number: US-PFIZER INC-2010028515

PATIENT
  Sex: Male

DRUGS (1)
  1. XALATAN [Suspect]
     Route: 047

REACTIONS (1)
  - DEAFNESS [None]
